FAERS Safety Report 23336272 (Version 2)
Quarter: 2023Q4

REPORT INFORMATION
  Report Type: Report from Study
  Country: IN (occurrence: IN)
  Receive Date: 20231225
  Receipt Date: 20231228
  Transmission Date: 20240109
  Serious: Yes (Death)
  Sender: FDA-Public Use
  Company Number: IN-ELI_LILLY_AND_COMPANY-IN202312012687

PATIENT
  Age: 59 Year
  Sex: Male
  Weight: 49 kg

DRUGS (1)
  1. LYUMJEV KWIKPEN [Suspect]
     Active Substance: INSULIN LISPRO
     Indication: Diabetes mellitus
     Dosage: 4 INTERNATIONAL UNIT, UNKNOWN
     Route: 058
     Dates: start: 20231109

REACTIONS (2)
  - Myocardial infarction [Fatal]
  - Haematemesis [Fatal]

NARRATIVE: CASE EVENT DATE: 20231110
